FAERS Safety Report 7335350 (Version 2)
Quarter: 2013Q2

REPORT INFORMATION
  Report Type: Spontaneous
  Country: US (occurrence: US)
  Receive Date: 20100329
  Receipt Date: 20130415
  Transmission Date: 20140414
  Serious: Yes (Hospitalization)
  Sender: FDA-Public Use
  Company Number: GXKR2010US02545

PATIENT
  Age: 50 Year
  Sex: Female

DRUGS (2)
  1. LABETALOL [Suspect]
     Route: 048
  2. LORAZEPAM [Suspect]
     Route: 048

REACTIONS (13)
  - Hypothermia [Recovered/Resolved]
  - Unresponsive to stimuli [Recovered/Resolved]
  - Electrocardiogram QRS complex prolonged [Recovered/Resolved]
  - Coma scale abnormal [Recovered/Resolved]
  - Respiratory rate decreased [Recovered/Resolved]
  - Blood potassium decreased [Recovered/Resolved]
  - Blood glucose increased [Recovered/Resolved]
  - Blood creatine phosphokinase increased [Recovered/Resolved]
  - Blood lactic acid increased [Recovered/Resolved]
  - Blood gases abnormal [Recovered/Resolved]
  - Hypotension [Recovered/Resolved]
  - Bradycardia [Recovered/Resolved]
  - Intentional overdose [Unknown]
